FAERS Safety Report 9947751 (Version 2)
Quarter: 2014Q1

REPORT INFORMATION
  Report Type: Spontaneous
  Country: US (occurrence: US)
  Receive Date: 20140303
  Receipt Date: 20140303
  Transmission Date: 20141002
  Serious: Yes (Hospitalization, Other)
  Sender: FDA-Public Use
  Company Number: US-ABBVIE-12P-163-0961576-00

PATIENT
  Sex: Female
  Weight: 102.15 kg

DRUGS (1)
  1. HUMIRA 40 MG/ 0.8 ML PRE-FILLED SYRINGE [Suspect]
     Indication: PSORIASIS
     Route: 058
     Dates: start: 2011, end: 2012

REACTIONS (1)
  - Histoplasmosis [Not Recovered/Not Resolved]
